FAERS Safety Report 15886548 (Version 4)
Quarter: 2019Q4

REPORT INFORMATION
  Report Type: Report from Study
  Country: US (occurrence: US)
  Receive Date: 20190129
  Receipt Date: 20191015
  Transmission Date: 20200122
  Serious: Yes (Hospitalization, Other)
  Sender: FDA-Public Use
  Company Number: US-ACTELION-A-US2019-185380

PATIENT
  Age: 62 Year
  Sex: Male

DRUGS (21)
  1. TADALAFIL. [Suspect]
     Active Substance: TADALAFIL
     Indication: PULMONARY ARTERIAL HYPERTENSION
     Dosage: 40 MG, BID
     Route: 065
     Dates: start: 20181115
  2. SMZ (CO) [Concomitant]
  3. FOLIC ACID. [Concomitant]
     Active Substance: FOLIC ACID
  4. TRIAMTERENE AND HYDROCHLOROTHIAZID [Concomitant]
     Active Substance: HYDROCHLOROTHIAZIDE\TRIAMTERENE
  5. OMEPRAZOLE. [Concomitant]
     Active Substance: OMEPRAZOLE
  6. HCTZ [Concomitant]
     Active Substance: HYDROCHLOROTHIAZIDE
  7. BRILINTA [Concomitant]
     Active Substance: TICAGRELOR
     Dosage: 90 MG
  8. IBUPROFEN. [Concomitant]
     Active Substance: IBUPROFEN
  9. PREDNISONE. [Concomitant]
     Active Substance: PREDNISONE
  10. RESTASIS [Concomitant]
     Active Substance: CYCLOSPORINE
  11. FERROUS SULFATE. [Concomitant]
     Active Substance: FERROUS SULFATE
  12. IRON [Concomitant]
     Active Substance: IRON
  13. METHOTREXATE. [Concomitant]
     Active Substance: METHOTREXATE
  14. GABAPENTIN. [Concomitant]
     Active Substance: GABAPENTIN
  15. ATORVASTATIN [Concomitant]
     Active Substance: ATORVASTATIN
     Dosage: 10 MG
  16. EZETIMIBE. [Concomitant]
     Active Substance: EZETIMIBE
  17. OPSUMIT [Suspect]
     Active Substance: MACITENTAN
     Indication: PULMONARY ARTERIAL HYPERTENSION
     Dosage: 10 MG, QD
     Route: 048
     Dates: start: 20180116
  18. BUPROPION. [Concomitant]
     Active Substance: BUPROPION
  19. CEVIMELINE. [Concomitant]
     Active Substance: CEVIMELINE
  20. CEPHALEXIN. [Concomitant]
     Active Substance: CEPHALEXIN
  21. FLUOROURACIL. [Concomitant]
     Active Substance: FLUOROURACIL

REACTIONS (4)
  - Stent placement [Unknown]
  - Localised infection [Unknown]
  - Deafness [Unknown]
  - Emergency care [Not Recovered/Not Resolved]

NARRATIVE: CASE EVENT DATE: 201905
